FAERS Safety Report 8382016-6 (Version None)
Quarter: 2012Q2

REPORT INFORMATION
  Report Type: 
  Country: None (occurrence: None)
  Receive Date: 20120522
  Receipt Date: 20120522
  Transmission Date: 20120825
  Serious: Yes (Hospitalization)
  Sender: FDA-Public Use
  Company Number: None

PATIENT
  Sex: Female
  Weight: 70.2 kg

DRUGS (9)
  1. ALLEGRA [Concomitant]
  2. FLONASE [Concomitant]
  3. MOBIC [Concomitant]
  4. PRILOSEC [Concomitant]
  5. PROZAC [Concomitant]
  6. SULFAMETHOXAZOLE AND TRIMETHOPRIM [Suspect]
     Indication: MICTURITION URGENCY
     Dosage: 800/160 MG BID PO
     Route: 048
     Dates: start: 20120509, end: 20120514
  7. SULFAMETHOXAZOLE AND TRIMETHOPRIM [Suspect]
     Indication: FLANK PAIN
     Dosage: 800/160 MG BID PO
     Route: 048
     Dates: start: 20120509, end: 20120514
  8. PERCOCET [Concomitant]
  9. FLOMAX [Concomitant]

REACTIONS (3)
  - PRURITUS [None]
  - PYREXIA [None]
  - RASH GENERALISED [None]
